FAERS Safety Report 9631035 (Version 1)
Quarter: 2013Q4

REPORT INFORMATION
  Report Type: Spontaneous
  Country: US (occurrence: US)
  Receive Date: 20131018
  Receipt Date: 20131018
  Transmission Date: 20140711
  Serious: No
  Sender: FDA-Public Use
  Company Number: US-009507513-1310USA006968

PATIENT
  Age: 54 Year
  Sex: Male

DRUGS (1)
  1. JANUMET [Suspect]
     Indication: HAEMOGLOBIN ABNORMAL
     Dosage: 50/1000MG, TWICE A DAY
     Route: 048

REACTIONS (1)
  - Hyponatraemia [Recovered/Resolved]
